FAERS Safety Report 19421904 (Version 1)
Quarter: 2021Q2

REPORT INFORMATION
  Report Type: Spontaneous
  Country: US (occurrence: US)
  Receive Date: 20210615
  Receipt Date: 20210615
  Transmission Date: 20210717
  Serious: No
  Sender: FDA-Public Use
  Company Number: None

PATIENT
  Age: 67 Year
  Sex: Male
  Weight: 69 kg

DRUGS (1)
  1. METFORMIN (METFORMIN HCL 1000MG TAB) [Suspect]
     Active Substance: METFORMIN HYDROCHLORIDE
     Indication: DIABETES MELLITUS
     Route: 048
     Dates: start: 20201130, end: 20210302

REACTIONS (5)
  - Urinary tract infection [None]
  - Haemodialysis [None]
  - Lactic acidosis [None]
  - Renal failure [None]
  - Sepsis [None]

NARRATIVE: CASE EVENT DATE: 20210227
